FAERS Safety Report 12118856 (Version 2)
Quarter: 2016Q1

REPORT INFORMATION
  Report Type: Spontaneous
  Country: US (occurrence: US)
  Receive Date: 20160226
  Receipt Date: 20160303
  Transmission Date: 20160526
  Serious: Yes (Other)
  Sender: FDA-Public Use
  Company Number: US-GILEAD-2016-0199999

PATIENT
  Age: 45 Year
  Sex: Female

DRUGS (2)
  1. ISENTRESS [Concomitant]
     Active Substance: RALTEGRAVIR POTASSIUM
     Indication: PRODUCT USED FOR UNKNOWN INDICATION
     Route: 065
  2. TRUVADA [Suspect]
     Active Substance: EMTRICITABINE\TENOFOVIR DISOPROXIL FUMARATE
     Indication: PROPHYLAXIS AGAINST HIV INFECTION
     Route: 065

REACTIONS (7)
  - Drug dose omission [Unknown]
  - Loss of consciousness [Unknown]
  - Headache [Unknown]
  - Somnolence [Unknown]
  - Product packaging issue [Unknown]
  - Nausea [Unknown]
  - Diarrhoea [Unknown]
